FAERS Safety Report 6717777-2 (Version None)
Quarter: 2010Q2

REPORT INFORMATION
  Report Type: 
  Country: None (occurrence: None)
  Receive Date: 20100510
  Receipt Date: 20100507
  Transmission Date: 20101027
  Serious: Yes (Hospitalization)
  Sender: FDA-Public Use
  Company Number: GXKR2010DE05121

PATIENT
  Age: 77 Year
  Sex: Male
  Weight: 51 kg

DRUGS (9)
  1. ACETYLSALICYLIC ACID SRT [Suspect]
     Indication: ISCHAEMIC HEART DISEASE PROPHYLAXIS
     Dosage: 100 MG, QD
     Route: 048
     Dates: start: 20090801
  2. PANTOPRAZOLE [Suspect]
     Indication: GASTRIC ULCER HAEMORRHAGE
     Dosage: 40 MG, QD
     Route: 048
     Dates: start: 20090801
  3. METRONIDAZOLE [Suspect]
     Indication: PNEUMONIA
     Dosage: 500 MG, TID
     Route: 048
     Dates: start: 20090828, end: 20090904
  4. CEFOTIAM HYDROCHLORIDE [Suspect]
     Indication: PNEUMONIA
     Dosage: 2 G, BID
     Route: 042
     Dates: start: 20090831, end: 20090903
  5. CLOPIDOGREL [Concomitant]
     Indication: ISCHAEMIC HEART DISEASE PROPHYLAXIS
     Dosage: 75 MG, QD
     Route: 048
     Dates: start: 20090901
  6. PENTOXIFYLLINE [Concomitant]
     Indication: PERIPHERAL ARTERIAL OCCLUSIVE DISEASE
     Dosage: 600 MG, QD
     Route: 048
     Dates: start: 20090801
  7. NEBIVOLOL [Concomitant]
     Indication: HYPERTENSION
     Dosage: 5 MG, QD
     Route: 048
     Dates: start: 20090801
  8. TRIAMPUR COMPOSITUM [Concomitant]
     Indication: HYPERTENSION
     Dosage: UNK
     Route: 048
     Dates: start: 20090801
  9. HALOPERIDOL [Concomitant]
     Indication: DEMENTIA
     Dosage: 1 MG, BID
     Route: 048
     Dates: start: 20090801

REACTIONS (1)
  - CLOSTRIDIUM DIFFICILE COLITIS [None]
